FAERS Safety Report 7395349-7 (Version None)
Quarter: 2011Q2

REPORT INFORMATION
  Report Type: 
  Country: None (occurrence: None)
  Receive Date: 20110405
  Receipt Date: 20110331
  Transmission Date: 20111010
  Serious: Yes (Other)
  Sender: FDA-Public Use
  Company Number: FR-PFIZER INC-2011037383

PATIENT
  Age: 87 Year
  Sex: Female
  Weight: 64 kg

DRUGS (9)
  1. COVERSYL [Concomitant]
     Indication: ACUTE CORONARY SYNDROME
     Dosage: 10 MG, 1X/DAY
     Dates: start: 20110113
  2. LASIX [Concomitant]
     Indication: ACUTE CORONARY SYNDROME
     Dosage: 40 MG, 1X/DAY
     Route: 048
     Dates: start: 20110113
  3. LEVOTHYROX [Concomitant]
     Dosage: UNK
  4. TENORMIN [Concomitant]
     Indication: ACUTE CORONARY SYNDROME
     Dosage: 25 MG, 2X/DAY
     Dates: start: 20110113
  5. AMLODIPINE BESYLATE [Concomitant]
     Indication: ACUTE CORONARY SYNDROME
     Dosage: 10 MG, 1X/DAY
     Route: 048
     Dates: start: 20110113
  6. DIFFU K [Concomitant]
     Indication: ACUTE CORONARY SYNDROME
     Dosage: 600 MG, 1X/DAY
     Dates: start: 20110113
  7. TAHOR [Suspect]
     Indication: LOW DENSITY LIPOPROTEIN
     Dosage: 40 MG, 1X/DAY
     Dates: start: 20110113, end: 20110202
  8. KARDEGIC [Concomitant]
     Indication: ACUTE CORONARY SYNDROME
     Dosage: 160 MG, 1X/DAY
     Route: 048
     Dates: start: 20110113
  9. TAHOR [Suspect]
     Indication: ACUTE CORONARY SYNDROME

REACTIONS (2)
  - HEPATITIS [None]
  - IATROGENIC INJURY [None]
